FAERS Safety Report 25968031 (Version 1)
Quarter: 2025Q4

REPORT INFORMATION
  Report Type: Report from Study
  Country: JP (occurrence: JP)
  Receive Date: 20251028
  Receipt Date: 20251028
  Transmission Date: 20260118
  Serious: Yes (Other)
  Sender: ABBVIE
  Company Number: JP-JNJFOC-20251030729

PATIENT

DRUGS (1)
  1. IMBRUVICA [Suspect]
     Active Substance: IBRUTINIB
     Indication: Mantle cell lymphoma
     Dosage: MORE THAN 420 MG REQUIRED DOSE
     Route: 048

REACTIONS (3)
  - Myelosuppression [Unknown]
  - Nausea [Unknown]
  - Fatigue [Unknown]
